FAERS Safety Report 24330519 (Version 2)
Quarter: 2025Q2

REPORT INFORMATION
  Report Type: Spontaneous
  Country: US (occurrence: US)
  Receive Date: 20240918
  Receipt Date: 20250410
  Transmission Date: 20250716
  Serious: No
  Sender: BEIGENE
  Company Number: US-BEIGENE-BGN-2024-013626

PATIENT
  Age: 68 Year

DRUGS (4)
  1. BRUKINSA [Suspect]
     Active Substance: ZANUBRUTINIB
     Indication: Waldenstrom^s macroglobulinaemia
     Dosage: 160 MILLIGRAM, BID
  2. BRUKINSA [Suspect]
     Active Substance: ZANUBRUTINIB
     Dosage: 80 MILLIGRAM, BID
  3. ACYCLOVIR [Concomitant]
     Active Substance: ACYCLOVIR
     Indication: Prophylaxis
     Dosage: UNK UNK, BID
  4. BACTRIM [Concomitant]
     Active Substance: SULFAMETHOXAZOLE\TRIMETHOPRIM
     Indication: Prophylaxis

REACTIONS (8)
  - Sneezing [Unknown]
  - Rhinorrhoea [Unknown]
  - Nasal pruritus [Unknown]
  - Nasal congestion [Unknown]
  - Upper-airway cough syndrome [Unknown]
  - Myalgia [Not Recovered/Not Resolved]
  - Fatigue [Recovering/Resolving]
  - Therapeutic response unexpected [Unknown]
